FAERS Safety Report 9679518 (Version 1)
Quarter: 2013Q4

REPORT INFORMATION
  Report Type: Spontaneous
  Country: US (occurrence: US)
  Receive Date: 20131109
  Receipt Date: 20131109
  Transmission Date: 20140711
  Serious: No
  Sender: FDA-Public Use
  Company Number: US-SANOFI-AVENTIS-2013SA070666

PATIENT
  Age: 61 Year
  Sex: Male

DRUGS (1)
  1. ALLEGRA-D [Suspect]
     Indication: HYPERSENSITIVITY
     Dosage: TAKEN FROM:^WITHIN LAST MONTH^?DOSE:QAM FOR 3 DOSES
     Route: 048

REACTIONS (3)
  - Feeling abnormal [Unknown]
  - Adverse event [Unknown]
  - Drug ineffective [Unknown]
